FAERS Safety Report 9473528 (Version 1)
Quarter: 2013Q3

REPORT INFORMATION
  Report Type: Spontaneous
  Country: FR (occurrence: FR)
  Receive Date: 20130823
  Receipt Date: 20130823
  Transmission Date: 20140515
  Serious: Yes (Hospitalization)
  Sender: FDA-Public Use
  Company Number: FR-TEVA-427167ISR

PATIENT
  Age: 81 Year
  Sex: Female

DRUGS (12)
  1. ACTIQ [Suspect]
     Route: 048
     Dates: start: 20130502
  2. LYRICA 75 MG PFIZER [Suspect]
     Dosage: 75 MILLIGRAM DAILY;
     Route: 048
     Dates: start: 20130330, end: 2013
  3. LYRICA 75 MG PFIZER [Suspect]
     Dosage: 150 MILLIGRAM DAILY;
     Route: 048
     Dates: start: 2013, end: 201305
  4. LYRICA 75 MG PFIZER [Suspect]
     Dosage: 200 AND THEN 300 MG
     Route: 048
     Dates: start: 201305, end: 2013
  5. LYRICA 75 MG PFIZER [Suspect]
     Dosage: 75 MILLIGRAM DAILY;
     Route: 048
     Dates: start: 20130606, end: 20130613
  6. SULFARLEM S 25 MG [Concomitant]
     Dosage: 6 DOSAGE FORMS DAILY;
     Route: 048
  7. FORLAX 10 G [Concomitant]
     Dosage: 2 DOSAGE FORMS DAILY;
     Route: 048
  8. SERESTA 10 MG [Concomitant]
     Dosage: 10 MILLIGRAM DAILY;
     Route: 048
  9. IXPRIM 37.5 MG/325 MG [Concomitant]
     Dosage: 4 DF UPON REQUEST
     Route: 048
  10. OXYCONTIN LP 20 MG [Concomitant]
     Dosage: 20 MILLIGRAM DAILY;
     Route: 048
     Dates: start: 20130502
  11. OXYNORM [Concomitant]
     Route: 048
     Dates: start: 20130502
  12. UVEDOSE [Concomitant]

REACTIONS (2)
  - Cholestasis [Recovering/Resolving]
  - Confusional state [Unknown]
